FAERS Safety Report 6114368-1 (Version None)
Quarter: 2009Q1

REPORT INFORMATION
  Report Type: 
  Country: None (occurrence: None)
  Receive Date: 20090313
  Receipt Date: 20090302
  Transmission Date: 20090719
  Serious: Yes (Hospitalization, Other)
  Sender: FDA-Public Use
  Company Number: GB-RANBAXY-2009RR-22390

PATIENT
  Age: 44 Year
  Sex: Male
  Weight: 163.5 kg

DRUGS (23)
  1. CODEINE SUL TAB [Suspect]
     Indication: MUSCLE SPASMS
     Dosage: 30 MG, QID
  2. ACOMPLIA [Suspect]
     Indication: OBESITY
     Dosage: 20 MG, UNK
     Route: 048
     Dates: start: 20080629, end: 20081013
  3. LISINOPRIL [Suspect]
  4. IRBESARTAN [Suspect]
     Dosage: 150 MG, UNK
  5. ACETAMINOPHEN [Suspect]
     Indication: MUSCLE SPASMS
     Dosage: 1 G, QID
     Route: 048
  6. SPIRONOLACTONE [Suspect]
     Dosage: 50 MG, UNK
  7. ASPIRIN [Concomitant]
     Indication: CARDIAC DISORDER
     Dosage: 75 MG, UNK
  8. ATENOLOL [Concomitant]
     Dosage: 50 MG, UNK
  9. ATORVASTATIN [Concomitant]
     Dosage: 80 MG, UNK
  10. BISOPROLOL [Concomitant]
  11. DILTIAZEM HYDROCHLORIDE [Concomitant]
  12. FUROSEMIDE [Concomitant]
     Dosage: 40 MG, UNK
  13. ISOSORBIDE MONONITRATE [Concomitant]
     Dosage: 1 DF, UNK
  14. ISPAGHULA [Concomitant]
     Dosage: 1 DF, BID
  15. LIDOCAINE [Concomitant]
  16. NITRAZEPAM [Concomitant]
     Dosage: 5 MG, UNK
  17. NITROGLYCERIN [Concomitant]
     Indication: CARDIAC DISORDER
     Dosage: 400 UG, UNK
  18. OMACOR [Concomitant]
     Dosage: 1 DF, QD
     Route: 048
  19. OMEPRAZOLE [Concomitant]
     Dosage: 20 MG, UNK
  20. QUININE SULPHATE [Concomitant]
     Dosage: 300 MG, UNK
  21. SOLIFENACIN SUCCINATE [Concomitant]
  22. TRIMETHOPRIM [Concomitant]
     Dosage: 100 MG, UNK
  23. VESICARE [Concomitant]
     Indication: BLADDER DISORDER
     Dosage: 5 MG, UNK

REACTIONS (14)
  - ATRIAL FIBRILLATION [None]
  - CONSTIPATION [None]
  - DYSPEPSIA [None]
  - FEAR OF EATING [None]
  - GASTROOESOPHAGEAL REFLUX DISEASE [None]
  - HAEMORRHOIDS [None]
  - HYPERTENSION [None]
  - NAUSEA [None]
  - PYREXIA [None]
  - RECTAL HAEMORRHAGE [None]
  - RENAL FAILURE [None]
  - RENAL PAIN [None]
  - VOMITING [None]
  - WEIGHT INCREASED [None]
